FAERS Safety Report 6882645-2 (Version None)
Quarter: 2010Q3

REPORT INFORMATION
  Report Type: 
  Country: None (occurrence: None)
  Receive Date: 20100701
  Receipt Date: 20100324
  Transmission Date: 20110219
  Serious: Yes (Life-Threatening, Hospitalization)
  Sender: FDA-Public Use
  Company Number: 226782USA

PATIENT
  Age: 44 Year
  Sex: Female
  Weight: 122.4712 kg

DRUGS (2)
  1. SEASONIQUE [Suspect]
     Indication: ANAEMIA
     Dosage: ONE DAILY
     Dates: start: 20100217, end: 20100301
  2. SEASONIQUE [Suspect]
     Indication: MENORRHAGIA
     Dosage: ONE DAILY
     Dates: start: 20100217, end: 20100301

REACTIONS (1)
  - PULMONARY EMBOLISM [None]
